FAERS Safety Report 11777719 (Version 1)
Quarter: 2015Q4

REPORT INFORMATION
  Report Type: Spontaneous
  Country: US (occurrence: None)
  Receive Date: 20151124
  Receipt Date: 20151124
  Transmission Date: 20160304
  Serious: No
  Sender: FDA-Public Use
  Company Number: None

PATIENT
  Age: 52 Year
  Sex: Male

DRUGS (1)
  1. INTRON A [Suspect]
     Active Substance: INTERFERON ALFA-2B
     Dosage: 20MU Q M W F
     Route: 058
     Dates: start: 20151027, end: 20151123

REACTIONS (2)
  - Malignant melanoma [None]
  - Neoplasm recurrence [None]

NARRATIVE: CASE EVENT DATE: 201511
